APPROVED DRUG PRODUCT: PAROXETINE HYDROCHLORIDE
Active Ingredient: PAROXETINE HYDROCHLORIDE
Strength: EQ 20MG BASE
Dosage Form/Route: TABLET;ORAL
Application: A078026 | Product #002
Applicant: ROXANE LABORATORIES INC
Approved: Jun 29, 2007 | RLD: No | RS: No | Type: DISCN